FAERS Safety Report 14796860 (Version 2)
Quarter: 2018Q3

REPORT INFORMATION
  Report Type: Report from Study
  Country: US (occurrence: US)
  Receive Date: 20180423
  Receipt Date: 20180720
  Transmission Date: 20181010
  Serious: No
  Sender: FDA-Public Use
  Company Number: US-AMGEN-USASL2018050903

PATIENT
  Age: 52 Year
  Sex: Male

DRUGS (3)
  1. REPATHA [Suspect]
     Active Substance: EVOLOCUMAB
     Indication: BLOOD CHOLESTEROL INCREASED
  2. REPATHA [Suspect]
     Active Substance: EVOLOCUMAB
     Indication: HYPERCHOLESTEROLAEMIA
  3. REPATHA [Suspect]
     Active Substance: EVOLOCUMAB
     Indication: ARTERIAL OCCLUSIVE DISEASE
     Dosage: 140 MG, Q2WK
     Route: 058
     Dates: start: 20180329, end: 2018

REACTIONS (7)
  - Drug dose omission [Not Recovered/Not Resolved]
  - Pain in extremity [Unknown]
  - Burning sensation [Not Recovered/Not Resolved]
  - Wrong technique in product usage process [Not Recovered/Not Resolved]
  - Constipation [Recovered/Resolved]
  - Dysphonia [Not Recovered/Not Resolved]
  - Product storage error [Unknown]

NARRATIVE: CASE EVENT DATE: 2018
